FAERS Safety Report 9667756 (Version 1)
Quarter: 2013Q4

REPORT INFORMATION
  Report Type: Spontaneous
  Country: US (occurrence: US)
  Receive Date: 20131104
  Receipt Date: 20131104
  Transmission Date: 20140711
  Serious: No
  Sender: FDA-Public Use
  Company Number: US-ENDO PHARMACEUTICALS INC.-PRED20110059

PATIENT
  Sex: Male

DRUGS (4)
  1. PREDNISONE [Suspect]
     Indication: NON-HODGKIN^S LYMPHOMA
     Dosage: UNKNOWN
     Route: 048
     Dates: start: 2006, end: 2006
  2. LANTUS [Suspect]
     Indication: TYPE 2 DIABETES MELLITUS
     Route: 058
     Dates: start: 2006, end: 2006
  3. LANTUS [Suspect]
     Route: 058
     Dates: start: 2009
  4. HUMALOG [Suspect]
     Indication: TYPE 2 DIABETES MELLITUS
     Dosage: UNKNOWN
     Route: 058
     Dates: start: 2006

REACTIONS (1)
  - Hyperglycaemia [Unknown]
